FAERS Safety Report 22351953 (Version 5)
Quarter: 2024Q1

REPORT INFORMATION
  Report Type: Spontaneous
  Country: TR (occurrence: TR)
  Receive Date: 20230522
  Receipt Date: 20240111
  Transmission Date: 20240410
  Serious: Yes (Life-Threatening, Hospitalization, Other)
  Sender: FDA-Public Use
  Company Number: TR-002147023-NVSC2022TR249274

PATIENT
  Age: 90 Year
  Sex: Female

DRUGS (4)
  1. EXELON [Suspect]
     Active Substance: RIVASTIGMINE TARTRATE
     Indication: Dementia
     Dosage: 13.3 MG, QD (PATCH 15 (CM2), STARTED 10 YEAR AGO
     Route: 062
  2. SEROQUEL [Suspect]
     Active Substance: QUETIAPINE FUMARATE
     Indication: Product used for unknown indication
     Dosage: UNK
     Route: 065
  3. CIPRALEX [Concomitant]
     Active Substance: ESCITALOPRAM OXALATE
     Indication: Memory impairment
     Dosage: UNK
     Route: 065
  4. MELANDA [Concomitant]
     Indication: Memory impairment
     Dosage: UNK
     Route: 065

REACTIONS (19)
  - Oropharyngeal discomfort [Unknown]
  - Arteriosclerosis [Unknown]
  - Movement disorder [Unknown]
  - Hallucination [Unknown]
  - General physical health deterioration [Not Recovered/Not Resolved]
  - Confusional state [Unknown]
  - Hypotension [Unknown]
  - Blood pressure abnormal [Unknown]
  - Cognitive disorder [Unknown]
  - Blood test abnormal [Unknown]
  - Feeling abnormal [Unknown]
  - Memory impairment [Not Recovered/Not Resolved]
  - Gait disturbance [Unknown]
  - Psychomotor hyperactivity [Unknown]
  - Aggression [Unknown]
  - Tremor [Unknown]
  - Hyperhidrosis [Unknown]
  - Product adhesion issue [Not Recovered/Not Resolved]
  - Product availability issue [Unknown]
